FAERS Safety Report 4659011-3 (Version None)
Quarter: 2005Q2

REPORT INFORMATION
  Report Type: 
  Country: None (occurrence: None)
  Receive Date: 20050511
  Receipt Date: 20050502
  Transmission Date: 20051028
  Serious: Yes (Other)
  Sender: FDA-Public Use
  Company Number: CA-GLAXOSMITHKLINE-A0556967A

PATIENT
  Age: 65 Year
  Sex: Female

DRUGS (2)
  1. ROSIGLITAZONE [Suspect]
     Indication: DIABETES MELLITUS NON-INSULIN-DEPENDENT
     Dosage: 8MG PER DAY
     Route: 048
     Dates: start: 20040908, end: 20050223
  2. LIPITOR [Concomitant]
     Indication: HYPERLIPIDAEMIA
     Dosage: 40MG AT NIGHT
     Route: 048
     Dates: start: 20050121, end: 20050430

REACTIONS (8)
  - HAEMOPTYSIS [None]
  - HEPATIC CIRRHOSIS [None]
  - PLEURAL EFFUSION [None]
  - PORTAL HYPERTENSION [None]
  - SPLEEN DISORDER [None]
  - SPLENOMEGALY [None]
  - VARICOSE VEIN [None]
  - WEIGHT DECREASED [None]
